FAERS Safety Report 12280216 (Version 2)
Quarter: 2016Q2

REPORT INFORMATION
  Report Type: Spontaneous
  Country: CH (occurrence: CH)
  Receive Date: 20160419
  Receipt Date: 20160426
  Transmission Date: 20160815
  Serious: Yes (Death, Hospitalization, Other)
  Sender: FDA-Public Use
  Company Number: CH-AMGEN-CHESP2016048053

PATIENT
  Age: 81 Year
  Sex: Male

DRUGS (7)
  1. TAXOTERE [Suspect]
     Active Substance: DOCETAXEL
     Indication: PROSTATE CANCER METASTATIC
     Dosage: UNK UNK, QWK
     Route: 041
     Dates: start: 20151013
  2. ASPIRIN CARDIO [Concomitant]
     Active Substance: ASPIRIN
     Dosage: 100 MG, QD
     Route: 048
  3. XGEVA [Suspect]
     Active Substance: DENOSUMAB
     Indication: PROSTATE CANCER METASTATIC
     Dosage: 120 MG, QMO
     Route: 058
     Dates: start: 2015
  4. PREDNISON STREULI [Concomitant]
     Dosage: 5 MG, QD
     Route: 048
  5. LUCRIN DEPO [Suspect]
     Active Substance: LEUPROLIDE ACETATE
     Indication: PROSTATE CANCER METASTATIC
     Dosage: 11.2 MG, Q3MO
     Route: 058
     Dates: start: 20150309
  6. COVERSUM N COMBI [Concomitant]
     Dosage: 1 DF, QD
     Route: 048
  7. TRESIBA [Suspect]
     Active Substance: INSULIN DEGLUDEC
     Indication: PRODUCT USED FOR UNKNOWN INDICATION
     Dosage: 10 IU, QD
     Route: 058
     Dates: start: 2015

REACTIONS (1)
  - Hepatitis fulminant [Fatal]

NARRATIVE: CASE EVENT DATE: 20160317
